FAERS Safety Report 16624984 (Version 1)
Quarter: 2019Q3

REPORT INFORMATION
  Report Type: Spontaneous
  Country: US (occurrence: US)
  Receive Date: 20190611
  Receipt Date: 20190611
  Transmission Date: 20191004
  Serious: Yes (Hospitalization)
  Sender: FDA-Public Use
  Company Number: None

PATIENT
  Age: 87 Year
  Sex: Male

DRUGS (5)
  1. MELOXICAM. [Suspect]
     Active Substance: MELOXICAM
     Indication: PAIN
     Dosage: ?          OTHER DOSE:7.5MG;?
     Route: 048
     Dates: start: 20160407, end: 20190419
  2. MELOXICAM. [Suspect]
     Active Substance: MELOXICAM
     Indication: ARTHRITIS
     Dosage: ?          OTHER DOSE:7.5MG;?
     Route: 048
     Dates: start: 20160407, end: 20190419
  3. RIVAROXABAN [Suspect]
     Active Substance: RIVAROXABAN
     Indication: PROSTATE CANCER
     Route: 048
     Dates: start: 20190312, end: 20190406
  4. RIVAROXABAN [Suspect]
     Active Substance: RIVAROXABAN
     Indication: PULMONARY EMBOLISM
     Route: 048
     Dates: start: 20190312, end: 20190406
  5. RIVAROXABAN [Suspect]
     Active Substance: RIVAROXABAN
     Indication: HYPERCOAGULATION
     Route: 048
     Dates: start: 20190312, end: 20190406

REACTIONS (3)
  - Presyncope [None]
  - Gastrointestinal haemorrhage [None]
  - Anaemia [None]

NARRATIVE: CASE EVENT DATE: 20190406
